FAERS Safety Report 16642788 (Version 2)
Quarter: 2019Q3

REPORT INFORMATION
  Report Type: Report from Study
  Country: None (occurrence: BR)
  Receive Date: 20190729
  Receipt Date: 20190731
  Transmission Date: 20191004
  Serious: Yes (Other)
  Sender: FDA-Public Use
  Company Number: BR-ABBVIE-19K-020-2867813-00

PATIENT
  Age: 31 Year
  Sex: Female
  Weight: 73 kg

DRUGS (1)
  1. HUMIRA [Suspect]
     Active Substance: ADALIMUMAB
     Indication: PSORIASIS
     Route: 058
     Dates: start: 20170706, end: 201904

REACTIONS (7)
  - Toothache [Not Recovered/Not Resolved]
  - Influenza [Recovered/Resolved]
  - Splenomegaly [Not Recovered/Not Resolved]
  - Insomnia [Not Recovered/Not Resolved]
  - Flatulence [Recovered/Resolved]
  - Abdominal pain [Recovered/Resolved]
  - Orthodontic procedure [Unknown]

NARRATIVE: CASE EVENT DATE: 2018
